FAERS Safety Report 9843395 (Version 1)
Quarter: 2013Q4

REPORT INFORMATION
  Report Type: Spontaneous
  Country: US (occurrence: None)
  Receive Date: 20131223
  Receipt Date: 20131223
  Transmission Date: 20140711
  Serious: No
  Sender: FDA-Public Use
  Company Number: 218885LEO

PATIENT
  Sex: Female

DRUGS (1)
  1. PICATO [Suspect]
     Indication: PRECANCEROUS CELLS PRESENT
     Route: 061
     Dates: start: 20120901

REACTIONS (5)
  - Application site burn [None]
  - Application site erythema [None]
  - Application site swelling [None]
  - Application site exfoliation [None]
  - Unevaluable event [None]
